FAERS Safety Report 10989762 (Version 1)
Quarter: 2015Q1

REPORT INFORMATION
  Report Type: Spontaneous
  Country: US (occurrence: None)
  Receive Date: 20150326
  Receipt Date: 20150326
  Transmission Date: 20150721
  Serious: No
  Sender: FDA-Public Use
  Company Number: 1000074766

PATIENT
  Age: 49 Year
  Sex: Female
  Weight: 102.7 kg

DRUGS (10)
  1. MELATONIN (MELATONIN) [Concomitant]
     Active Substance: MELATONIN
  2. MOTRIN [Concomitant]
     Active Substance: IBUPROFEN
  3. VITAMIN D3 [Concomitant]
     Active Substance: CHOLECALCIFEROL
  4. ARMOUR THYROID (THYROID) [Concomitant]
  5. LINZESS [Suspect]
     Active Substance: LINACLOTIDE
     Indication: CONSTIPATION
     Route: 048
     Dates: start: 20140810
  6. HYDROCHLOROTHIAZIDE (HYDROCHLOROTHIAZIDE) [Concomitant]
     Active Substance: HYDROCHLOROTHIAZIDE
  7. HYZAAR (LOSARTAN, HYDROCHLOROTHIAZIDE) [Concomitant]
  8. MAGNESIUM WITH CHELATED ZINC (MAGNESIUM, CHELATED ZINC) [Concomitant]
  9. GAS-X (SIMETICONE) [Concomitant]
  10. OMEPRAZOLE (OMEPRAZOLE) [Concomitant]
     Active Substance: OMEPRAZOLE

REACTIONS (2)
  - Fungal infection [None]
  - Vulvovaginal pruritus [None]

NARRATIVE: CASE EVENT DATE: 20140815
